FAERS Safety Report 18608332 (Version 1)
Quarter: 2020Q4

REPORT INFORMATION
  Report Type: Spontaneous
  Country: BR (occurrence: BR)
  Receive Date: 20201212
  Receipt Date: 20201212
  Transmission Date: 20210114
  Serious: Yes (Other)
  Sender: FDA-Public Use
  Company Number: NVSC2020BR327890

PATIENT
  Sex: Male

DRUGS (1)
  1. COSENTYX [Suspect]
     Active Substance: SECUKINUMAB
     Indication: PRODUCT USED FOR UNKNOWN INDICATION
     Dosage: UNK
     Route: 065

REACTIONS (13)
  - Hyperaesthesia [Unknown]
  - Fibromyalgia [Unknown]
  - Allodynia [Unknown]
  - Hepatic function abnormal [Unknown]
  - Gout [Unknown]
  - Back pain [Unknown]
  - Renal impairment [Unknown]
  - Fatigue [Unknown]
  - Affective disorder [Unknown]
  - Insomnia [Unknown]
  - Ankylosing spondylitis [Unknown]
  - Anxiety [Unknown]
  - Sacroiliitis [Unknown]
